FAERS Safety Report 6982030-9 (Version None)
Quarter: 2010Q3

REPORT INFORMATION
  Report Type: 
  Country: None (occurrence: None)
  Receive Date: 20100914
  Receipt Date: 20091123
  Transmission Date: 20110219
  Serious: No
  Sender: FDA-Public Use
  Company Number: US-PFIZER INC-2009276278

PATIENT
  Sex: Male
  Weight: 69.4 kg

DRUGS (2)
  1. LYRICA [Suspect]
     Indication: BACK PAIN
     Dosage: 25 MG, 2X/DAY
     Route: 048
     Dates: start: 20090901
  2. WARFARIN SODIUM [Concomitant]
     Indication: CARDIAC PACEMAKER INSERTION
     Dosage: UNK

REACTIONS (6)
  - DISTURBANCE IN ATTENTION [None]
  - FATIGUE [None]
  - MUSCULAR WEAKNESS [None]
  - TREMOR [None]
  - URINARY INCONTINENCE [None]
  - VISUAL IMPAIRMENT [None]
